FAERS Safety Report 16474611 (Version 1)
Quarter: 2019Q3

REPORT INFORMATION
  Report Type: Spontaneous
  Country: US (occurrence: US)
  Receive Date: 20190624
  Receipt Date: 20190624
  Transmission Date: 20191004
  Serious: Yes (Hospitalization, Congenital Anomaly)
  Sender: FDA-Public Use
  Company Number: None

PATIENT
  Age: 75 Year
  Sex: Male

DRUGS (9)
  1. FAMOTIDINE 40 MG [Concomitant]
     Active Substance: FAMOTIDINE
     Dates: start: 20190306
  2. SODIUM BICARBONATE 10 GR [Concomitant]
     Dates: start: 20181022
  3. TAMSULOSIN 0.4 [Concomitant]
     Dates: start: 20190111
  4. NIFEDIPINE 60 MG ER [Concomitant]
     Dates: start: 20190111
  5. DEXAMETHASONE 4 MG [Concomitant]
     Active Substance: DEXAMETHASONE
     Dates: start: 20190612
  6. ATORVASTATIN 40 MG [Concomitant]
     Active Substance: ATORVASTATIN
     Dates: start: 20190529
  7. EPOGEN [Suspect]
     Active Substance: ERYTHROPOIETIN
     Indication: PRODUCT USED FOR UNKNOWN INDICATION
     Dosage: ?          OTHER FREQUENCY:Q2WKS;?
     Route: 058
     Dates: start: 20190128
  8. CALCITROL 0.25 MCG [Concomitant]
     Dates: start: 20190107
  9. EPOGEN [Suspect]
     Active Substance: ERYTHROPOIETIN
     Dosage: ?          OTHER FREQUENCY:Q2WKS;?
     Route: 058
     Dates: start: 20181227

REACTIONS (2)
  - Fall [None]
  - Head injury [None]

NARRATIVE: CASE EVENT DATE: 20190621
